FAERS Safety Report 8975281 (Version 1)
Quarter: 2012Q4

REPORT INFORMATION
  Report Type: 
  Country: BE (occurrence: BE)
  Receive Date: 20121219
  Receipt Date: 20121219
  Transmission Date: 20130627
  Serious: Yes (Other)
  Sender: FDA-Public Use
  Company Number: BE-WATSON-2012-19799

PATIENT
  Age: 15 Year
  Sex: Male

DRUGS (9)
  1. OMEPRAZOLE (UNKNOWN) [Suspect]
     Indication: GASTRIC ULCER
     Dosage: UNK, unknown
     Route: 048
  2. METHOTREXATE [Interacting]
     Indication: ACUTE LYMPHOCYTIC LEUKAEMIA
     Dosage: 5 g/m over 24 hrs
     Route: 042
  3. RANITIDINE [Concomitant]
     Indication: GASTRIC ULCER
     Dosage: 150 mg, unknown
     Route: 065
  4. DEXAMETHASONE [Concomitant]
     Indication: ACUTE LYMPHOCYTIC LEUKAEMIA
     Dosage: 6 mg/m2, UNK
     Route: 065
  5. CYCLOPHOSPHAMIDE [Concomitant]
     Indication: ACUTE LYMPHOCYTIC LEUKAEMIA
     Dosage: 1g/m 2
     Route: 065
  6. VINCRISTINE [Concomitant]
     Indication: ACUTE LYMPHOCYTIC LEUKAEMIA
     Dosage: 1.5 mg/m2, UNK
     Route: 065
  7. DAUNORUBICINE [Concomitant]
     Indication: ACUTE LYMPHOCYTIC LEUKAEMIA
     Dosage: 40 mg/m2, unknown
     Route: 065
  8. ASPARAGINASE [Concomitant]
     Indication: ACUTE LYMPHOCYTIC LEUKAEMIA
     Dosage: 10,000 U/ m2
  9. CALCIUM FOLINATE DBL [Concomitant]
     Indication: PRODUCT USED FOR UNKNOWN INDICATION
     Dosage: 40 mg, qid
     Route: 065

REACTIONS (4)
  - Drug clearance decreased [Recovered/Resolved]
  - Drug interaction [Recovered/Resolved]
  - Mucosal inflammation [Recovered/Resolved]
  - Drug level increased [Recovered/Resolved]
